FAERS Safety Report 8264884-1 (Version None)
Quarter: 2012Q2

REPORT INFORMATION
  Report Type: 
  Country: None (occurrence: None)
  Receive Date: 20120403
  Receipt Date: 20120322
  Transmission Date: 20120825
  Serious: Yes (Other)
  Sender: FDA-Public Use
  Company Number: 1195005

PATIENT
  Age: 69 Year
  Sex: Male
  Weight: 48 kg

DRUGS (7)
  1. ROCURONIUM BROMIDE [Concomitant]
  2. (INOVAN /00360702/) [Concomitant]
  3. DIAZEPAM [Concomitant]
  4. DEXMEDETOMIDINE HYDROCHLORIDE [Suspect]
     Indication: SEDATIVE THERAPY
     Dosage: 0.3-0.4 MICROG/KG/HR X 1, INTRAVENOUS
     Route: 042
     Dates: start: 20120116, end: 20120117
  5. SEVOFLURANE [Suspect]
     Indication: GENERAL ANAESTHESIA
     Dosage: 1-3% X 1, RESPIRATORY
     Route: 055
     Dates: start: 20120116, end: 20120116
  6. (DOBUPUM) [Concomitant]
  7. FENTANYL CITRATE [Concomitant]

REACTIONS (8)
  - ACIDOSIS [None]
  - HYPERTHERMIA MALIGNANT [None]
  - BLOOD CREATINE PHOSPHOKINASE INCREASED [None]
  - MUSCLE RIGIDITY [None]
  - CHILLS [None]
  - CIRCULATORY COLLAPSE [None]
  - HYPERTHERMIA [None]
  - MUSCULOSKELETAL STIFFNESS [None]
